FAERS Safety Report 5202646-X (Version None)
Quarter: 2006Q4

REPORT INFORMATION
  Report Type: 
  Country: None (occurrence: None)
  Receive Date: 20061016
  Receipt Date: 20060810
  Transmission Date: 20070319
  Serious: No
  Sender: FDA-Public Use
  Company Number: 2006SP002972

PATIENT
  Age: 63 Year
  Sex: Female
  Weight: 70.3075 kg

DRUGS (5)
  1. LUNESTA [Suspect]
     Indication: INSOMNIA
     Dosage: 2 MG;ORAL
     Route: 048
     Dates: start: 20060701, end: 20060701
  2. MONOPRIL [Concomitant]
  3. VERELAN [Concomitant]
  4. DYAZIDE [Concomitant]
  5. CELEBREX [Concomitant]

REACTIONS (1)
  - DYSGEUSIA [None]
